FAERS Safety Report 8383186-6 (Version None)
Quarter: 2012Q2

REPORT INFORMATION
  Report Type: 
  Country: None (occurrence: None)
  Receive Date: 20120524
  Receipt Date: 20120515
  Transmission Date: 20120825
  Serious: Yes (Hospitalization)
  Sender: FDA-Public Use
  Company Number: JP-EISAI INC-E7389-01623-CLI-JP

PATIENT
  Sex: Female
  Weight: 40 kg

DRUGS (29)
  1. HALAVEN [Suspect]
  2. DECADRON [Concomitant]
     Indication: PROPHYLAXIS
  3. HALAVEN [Suspect]
     Indication: METASTASES TO LUNG
  4. CELESTAMINE TAB [Concomitant]
     Indication: PROPHYLAXIS
     Route: 048
  5. NEOPHAGEN [Concomitant]
     Indication: PROPHYLAXIS
  6. ZOMETA [Concomitant]
     Indication: METASTASES TO BONE
  7. GRANISETRON [Concomitant]
     Indication: PROPHYLAXIS
  8. MEDROXYPROGESTERONE ACETATE [Concomitant]
  9. FAMOTIDINE [Concomitant]
     Indication: PROPHYLAXIS
  10. LANSOPRAZOLE [Concomitant]
     Indication: PROPHYLAXIS
     Route: 048
  11. PHENYTOIN SODIUM CAP [Concomitant]
     Indication: PROPHYLAXIS
     Route: 048
  12. GLYCEOL [Concomitant]
  13. TPN ELECTROLYTES IN PLASTIC CONTAINER [Concomitant]
  14. HALAVEN [Suspect]
     Indication: BREAST CANCER RECURRENT
     Dates: start: 20110804
  15. INKALBON [Concomitant]
  16. MEDROXYPROGESTERONE ACETATE [Concomitant]
     Indication: BREAST CANCER RECURRENT
     Route: 048
     Dates: start: 20100603
  17. FUROSEMIDE [Concomitant]
  18. ELIETEN [Concomitant]
     Indication: PROPHYLAXIS
     Route: 048
  19. HALAVEN [Suspect]
     Indication: METASTASES TO LIVER
  20. AZUNOL [Concomitant]
     Indication: PROPHYLAXIS
  21. MAGNESIUM SULFATE [Concomitant]
     Indication: CONSTIPATION
  22. FLOKISYL [Concomitant]
     Indication: PROPHYLAXIS
     Route: 048
  23. SUPELZON [Concomitant]
     Indication: PROPHYLAXIS
  24. HALAVEN [Suspect]
     Indication: METASTASES TO BONE
  25. MEDROXYPROGESTERONE ACETATE [Concomitant]
  26. LOXOMARIN [Concomitant]
     Route: 048
  27. PACIF [Concomitant]
     Route: 048
  28. PRECOAT [Concomitant]
     Route: 048
  29. CODEINE PHOSPHATE HYDRATE [Concomitant]
     Route: 048

REACTIONS (5)
  - LEUKOPENIA [None]
  - LYMPHOPENIA [None]
  - NEUTROPENIA [None]
  - FEBRILE NEUTROPENIA [None]
  - PNEUMONIA [None]
